FAERS Safety Report 5472491-9 (Version None)
Quarter: 2007Q4

REPORT INFORMATION
  Report Type: 
  Country: None (occurrence: None)
  Receive Date: 20071001
  Receipt Date: 20070917
  Transmission Date: 20080405
  Serious: Yes (Hospitalization, Disabling, Other)
  Sender: FDA-Public Use
  Company Number: DE-AVENTIS-200612724DE

PATIENT
  Age: 61 Year
  Sex: Male
  Weight: 73 kg

DRUGS (7)
  1. TAXOTERE [Suspect]
     Route: 042
     Dates: start: 20051005, end: 20051229
  2. DEXAMETHASONE [Concomitant]
     Indication: PROPHYLAXIS
     Dosage: DOSE: NOT REPORTED
     Dates: start: 20051005, end: 20051229
  3. ANTIEMETICS AND ANTINAUSEANTS [Concomitant]
     Dosage: DOSE: NOT REPORTED
     Dates: start: 20051005, end: 20051229
  4. LH-RH [Concomitant]
     Dosage: DOSE: NOT REPORTED
     Dates: start: 20051005, end: 20051229
  5. ACTRAPHANE [Concomitant]
     Route: 058
  6. CIBADREX [Concomitant]
     Dosage: DOSE: NOT REPORTED
     Route: 048
  7. VERAMEX [Concomitant]
     Dosage: DOSE: NOT REPORTED
     Route: 048

REACTIONS (4)
  - FLUID RETENTION [None]
  - GANGRENE [None]
  - OEDEMA [None]
  - SWELLING [None]
